FAERS Safety Report 6896722-3 (Version None)
Quarter: 2010Q3

REPORT INFORMATION
  Report Type: 
  Country: None (occurrence: None)
  Receive Date: 20100802
  Receipt Date: 20070203
  Transmission Date: 20110219
  Serious: Yes (Other)
  Sender: FDA-Public Use
  Company Number: US-PFIZER INC-2007009604

PATIENT
  Sex: Female
  Weight: 71.7 kg

DRUGS (11)
  1. LYRICA [Suspect]
     Indication: NEURALGIA
     Dates: start: 20070101, end: 20070202
  2. COREG [Concomitant]
  3. RESTORIL [Concomitant]
  4. LANOXIN [Concomitant]
  5. VASOTEC [Concomitant]
  6. LASIX [Concomitant]
  7. ZOCOR [Concomitant]
  8. FOSAMAX [Concomitant]
  9. ACETYLSALICYLIC ACID SRT [Concomitant]
  10. ASCORBIC ACID [Concomitant]
  11. IRON [Concomitant]

REACTIONS (4)
  - DYSPNOEA [None]
  - EFFUSION [None]
  - PERIARTHRITIS [None]
  - WEIGHT INCREASED [None]
